FAERS Safety Report 21169140 (Version 3)
Quarter: 2022Q3

REPORT INFORMATION
  Report Type: Report from Study
  Country: US (occurrence: US)
  Receive Date: 20220804
  Receipt Date: 20220826
  Transmission Date: 20221027
  Serious: Yes (Hospitalization, Other)
  Sender: FDA-Public Use
  Company Number: US-BoehringerIngelheim-2022-BI-157304

PATIENT
  Age: 82 Year
  Sex: Male

DRUGS (3)
  1. OFEV [Suspect]
     Active Substance: NINTEDANIB
     Indication: Idiopathic pulmonary fibrosis
     Route: 048
     Dates: start: 202202, end: 202208
  2. PLAVIX [Concomitant]
     Active Substance: CLOPIDOGREL BISULFATE
     Indication: Product used for unknown indication
  3. ASPIRIN [Concomitant]
     Active Substance: ASPIRIN
     Indication: Product used for unknown indication

REACTIONS (10)
  - Myocardial infarction [Recovering/Resolving]
  - Gastrointestinal haemorrhage [Recovered/Resolved]
  - COVID-19 pneumonia [Recovering/Resolving]
  - Hypertension [Unknown]
  - Diarrhoea [Recovered/Resolved]
  - Weight decreased [Unknown]
  - Decreased appetite [Unknown]
  - Blood creatine phosphokinase increased [Unknown]
  - Dizziness [Unknown]
  - Fatigue [Unknown]

NARRATIVE: CASE EVENT DATE: 20220615
